FAERS Safety Report 16532067 (Version 12)
Quarter: 2020Q4

REPORT INFORMATION
  Report Type: Report from Study
  Country: CO (occurrence: CO)
  Receive Date: 20190704
  Receipt Date: 20201216
  Transmission Date: 20210113
  Serious: Yes (Other)
  Sender: FDA-Public Use
  Company Number: CO-AEGERION PHARMACEUTICAL, INC-AEGR004364

PATIENT

DRUGS (11)
  1. METRELEPTIN [Suspect]
     Active Substance: METRELEPTIN
     Dosage: 0.10 MG/KG, QD
     Route: 058
     Dates: end: 20190422
  2. THYROXINE [Concomitant]
     Active Substance: LEVOTHYROXINE
     Indication: HYPOTHYROIDISM
  3. METRELEPTIN [Suspect]
     Active Substance: METRELEPTIN
     Indication: LIPODYSTROPHY ACQUIRED
     Dosage: 0.06 MG/KG (0.02 ML) , QD
     Dates: start: 20170527
  4. INSULIN [Concomitant]
     Active Substance: INSULIN NOS
     Indication: PRODUCT USED FOR UNKNOWN INDICATION
  5. METRELEPTIN [Suspect]
     Active Substance: METRELEPTIN
     Dosage: 0.12 MG/KG, QD (TOTAL DOSE DAY DIVIDED)
     Dates: start: 20200303
  6. OMEGA 3                            /01334101/ [Concomitant]
     Active Substance: OMEGA-3 FATTY ACIDS
     Indication: HYPERTRIGLYCERIDAEMIA
     Dosage: 3 G, QD, BEFORE EACH MEAL
     Route: 048
     Dates: start: 20160307
  7. METRELEPTIN [Suspect]
     Active Substance: METRELEPTIN
     Dosage: 0.11 MG/KG (0.46 ML/ 2,36MG/DAIY) QD
     Route: 058
     Dates: start: 20190423, end: 20190723
  8. THYROXINE [Concomitant]
     Active Substance: LEVOTHYROXINE
     Indication: AUTOIMMUNE THYROIDITIS
     Dosage: 50 MCG, QD
     Route: 048
     Dates: start: 20130807
  9. INSULIN LISPRO [Concomitant]
     Active Substance: INSULIN LISPRO
     Indication: TYPE 1 DIABETES MELLITUS
     Dosage: 8 UNITS, BEFORE MEALS
     Route: 058
     Dates: start: 20120530
  10. LEVEMIR [Concomitant]
     Active Substance: INSULIN DETEMIR
     Indication: TYPE 1 DIABETES MELLITUS
     Dosage: 38 UNK, AM AND PM ( IN 2 DOSES)
     Route: 058
     Dates: start: 20120530
  11. GEMFIBROZIL. [Concomitant]
     Active Substance: GEMFIBROZIL
     Indication: HYPERTRIGLYCERIDAEMIA
     Dosage: 400 MG, BID
     Route: 048
     Dates: start: 20190417

REACTIONS (13)
  - Aspartate aminotransferase increased [Recovered/Resolved]
  - Neutralising antibodies positive [Not Recovered/Not Resolved]
  - Condition aggravated [Recovering/Resolving]
  - Alanine aminotransferase increased [Recovered/Resolved]
  - Insulin resistance [Recovering/Resolving]
  - Drug ineffective [Recovering/Resolving]
  - Hyperphagia [Recovering/Resolving]
  - Hypertriglyceridaemia [Recovering/Resolving]
  - Product dose omission issue [Unknown]
  - Diet noncompliance [Recovering/Resolving]
  - Diabetes mellitus [Recovering/Resolving]
  - Hepatic steatosis [Recovering/Resolving]
  - Product physical issue [Recovered/Resolved]

NARRATIVE: CASE EVENT DATE: 20171121
